FAERS Safety Report 21443150 (Version 1)
Quarter: 2022Q4

REPORT INFORMATION
  Report Type: Spontaneous
  Country: US (occurrence: US)
  Receive Date: 20221012
  Receipt Date: 20221012
  Transmission Date: 20230113
  Serious: No
  Sender: FDA-Public Use
  Company Number: US-JNJFOC-20221005471

PATIENT
  Age: 2 Year
  Sex: Male

DRUGS (1)
  1. CHILDRENS MOTRIN [Suspect]
     Active Substance: IBUPROFEN
     Indication: Accidental exposure to product by child
     Dosage: THREE QUARTERS
     Route: 048
     Dates: start: 20221003

REACTIONS (2)
  - Accidental exposure to product by child [Unknown]
  - Accidental overdose [Unknown]

NARRATIVE: CASE EVENT DATE: 20221003
